FAERS Safety Report 20722554 (Version 3)
Quarter: 2022Q2

REPORT INFORMATION
  Report Type: Spontaneous
  Country: JP (occurrence: JP)
  Receive Date: 20220418
  Receipt Date: 20220602
  Transmission Date: 20220721
  Serious: Yes (Other)
  Sender: FDA-Public Use
  Company Number: JP-NOVARTISPH-NVSJ2022JP003336

PATIENT
  Age: 79 Year
  Sex: Male
  Weight: 64 kg

DRUGS (5)
  1. BEOVU [Suspect]
     Active Substance: BROLUCIZUMAB-DBLL
     Indication: Age-related macular degeneration
     Dosage: 6 MG
     Route: 031
     Dates: start: 20211213, end: 20211213
  2. BEOVU [Suspect]
     Active Substance: BROLUCIZUMAB-DBLL
     Dosage: 6 MG
     Route: 031
     Dates: start: 20220114, end: 20220114
  3. MOXIFLOXACIN HYDROCHLORIDE [Suspect]
     Active Substance: MOXIFLOXACIN HYDROCHLORIDE
     Indication: Infection prophylaxis
     Dosage: UNK, QID, RIGHT EYE
     Route: 047
     Dates: start: 20211210, end: 20211216
  4. MOXIFLOXACIN HYDROCHLORIDE [Suspect]
     Active Substance: MOXIFLOXACIN HYDROCHLORIDE
     Dosage: UNK, QID, RIGHT EYE
     Route: 047
     Dates: start: 20220111, end: 20220117
  5. MOXIFLOXACIN HYDROCHLORIDE [Suspect]
     Active Substance: MOXIFLOXACIN HYDROCHLORIDE
     Dosage: UNK, QID, RIGHT EYE
     Route: 047
     Dates: start: 20220210, end: 20220214

REACTIONS (5)
  - Retinal vasculitis [Recovering/Resolving]
  - Visual acuity reduced [Unknown]
  - Vitreous opacities [Unknown]
  - Retinal perivascular sheathing [Recovering/Resolving]
  - Non-infectious endophthalmitis [Recovering/Resolving]

NARRATIVE: CASE EVENT DATE: 20220214
